FAERS Safety Report 9993825 (Version 2)
Quarter: 2014Q1

REPORT INFORMATION
  Report Type: Spontaneous
  Country: US (occurrence: US)
  Receive Date: 20140310
  Receipt Date: 20140310
  Transmission Date: 20141002
  Serious: No
  Sender: FDA-Public Use
  Company Number: US-AMGEN-USASP2013040747

PATIENT
  Age: 82 Year
  Sex: Female
  Weight: 62.13 kg

DRUGS (6)
  1. SENSIPAR [Suspect]
     Indication: HYPERPARATHYROIDISM PRIMARY
     Dosage: 30 MG, BID
     Route: 048
     Dates: start: 20120917, end: 20130225
  2. SYNTHROID [Concomitant]
     Indication: HYPOTHYROIDISM
     Dosage: 100 MUG, QD
  3. BIOTIN [Concomitant]
     Dosage: 2.5 MG, QD
  4. COD LIVER OIL [Concomitant]
  5. METAMUCIL                          /00029101/ [Concomitant]
     Dosage: 1 TSF 3X1 DAY
  6. ASA [Concomitant]
     Dosage: 325 MG, QD
     Route: 048

REACTIONS (1)
  - Muscle spasms [Recovered/Resolved]
